FAERS Safety Report 8579232-7 (Version None)
Quarter: 2012Q3

REPORT INFORMATION
  Report Type: 
  Country: None (occurrence: None)
  Receive Date: 20120808
  Receipt Date: 20120112
  Transmission Date: 20120928
  Serious: Yes (Other)
  Sender: FDA-Public Use
  Company Number: US-ROCHE-1095395

PATIENT
  Sex: Female

DRUGS (12)
  1. VENTOLIN [Concomitant]
  2. SYMBICORT [Concomitant]
  3. PREDNISONE TAB [Concomitant]
  4. ALBUTEROL [Concomitant]
  5. PROVENTIL GENTLEHALER [Concomitant]
  6. FLUTICASONE PROPIONATE [Concomitant]
  7. VICODIN [Concomitant]
  8. AVELOX [Concomitant]
  9. SINGULAIR [Concomitant]
  10. HYDROCHLOROTHIAZIDE [Concomitant]
  11. XOLAIR [Suspect]
     Indication: ASTHMA
     Dates: start: 20061012
  12. XOLAIR [Suspect]
     Dates: start: 20081030

REACTIONS (6)
  - EMOTIONAL DISORDER [None]
  - BRONCHITIS [None]
  - COUGH [None]
  - SPUTUM DISCOLOURED [None]
  - RESPIRATORY TRACT INFECTION [None]
  - SINUSITIS [None]
